FAERS Safety Report 6986643-X (Version None)
Quarter: 2010Q3

REPORT INFORMATION
  Report Type: 
  Country: None (occurrence: None)
  Receive Date: 20100915
  Receipt Date: 20090717
  Transmission Date: 20110219
  Serious: No
  Sender: FDA-Public Use
  Company Number: US-WYE-H10207309

PATIENT
  Sex: Female
  Weight: 97.61 kg

DRUGS (5)
  1. PRISTIQ [Suspect]
     Indication: DEPRESSION
     Route: 048
     Dates: start: 20090628, end: 20090629
  2. CALCIUM [Concomitant]
  3. ACETYLSALICYLIC ACID [Concomitant]
  4. ALTACE [Concomitant]
  5. ERGOCALCIFEROL [Concomitant]

REACTIONS (3)
  - EYELID OEDEMA [None]
  - PANIC ATTACK [None]
  - SWOLLEN TONGUE [None]
